FAERS Safety Report 8395835-7 (Version None)
Quarter: 2012Q2

REPORT INFORMATION
  Report Type: 
  Country: None (occurrence: None)
  Receive Date: 20120530
  Receipt Date: 20120522
  Transmission Date: 20120825
  Serious: Yes (Hospitalization)
  Sender: FDA-Public Use
  Company Number: IE-US-EMD SERONO, INC.-7122136

PATIENT
  Sex: Female

DRUGS (3)
  1. REBIF [Suspect]
     Indication: RELAPSING-REMITTING MULTIPLE SCLEROSIS
     Route: 058
     Dates: start: 20070703, end: 20080326
  2. REBIF [Suspect]
     Route: 058
     Dates: start: 20090112, end: 20100601
  3. REBIF [Suspect]
     Route: 058
     Dates: start: 20110328

REACTIONS (4)
  - HYPOAESTHESIA [None]
  - PAIN IN EXTREMITY [None]
  - HEMIPARESIS [None]
  - PREGNANCY [None]
